FAERS Safety Report 8421117-0 (Version None)
Quarter: 2012Q2

REPORT INFORMATION
  Report Type: 
  Country: None (occurrence: None)
  Receive Date: 20120323
  Receipt Date: 20111208
  Transmission Date: 20120825
  Serious: Yes (Hospitalization, Other)
  Sender: FDA-Public Use
  Company Number: 163-21880-11121252

PATIENT
  Age: 53 Year
  Sex: Male

DRUGS (8)
  1. HYDRALAZINE HCL [Concomitant]
  2. REVLIMID [Suspect]
     Indication: MYELODYSPLASTIC SYNDROME
     Dosage: 5 MG, 3 X A WEEK AFTER HEMODIALYSIS, PO
     Route: 048
     Dates: start: 20111115, end: 20111127
  3. LANTUS [Concomitant]
  4. LABETALOL HCL [Concomitant]
  5. LEVOTHYROXINE SODIUM [Concomitant]
  6. TRAZODONE HCL [Concomitant]
  7. AMLODIPINE [Concomitant]
  8. ASPIRIN [Concomitant]

REACTIONS (7)
  - MUSCLE SPASMS [None]
  - PARAESTHESIA [None]
  - THROMBOSIS [None]
  - WHITE BLOOD CELL COUNT DECREASED [None]
  - HAEMOGLOBIN DECREASED [None]
  - DIARRHOEA [None]
  - ASTHENIA [None]
